FAERS Safety Report 8816484 (Version 1)
Quarter: 2012Q4

REPORT INFORMATION
  Report Type: Spontaneous
  Country: US (occurrence: None)
  Receive Date: 20120927
  Receipt Date: 20120927
  Transmission Date: 20130627
  Serious: Yes (Hospitalization)
  Sender: FDA-Public Use
  Company Number: AUR-APL-2012-04107

PATIENT
  Age: 31 Month
  Sex: Male

DRUGS (2)
  1. CEFTRIAXONE [Suspect]
     Indication: PNEUMONIA
     Dosage: 2 DOSES, INTRAMUSCULAR
     Route: 030
  2. CEFDINIR [Suspect]
     Dosage: 10 D ORAL
     Route: 048

REACTIONS (1)
  - Blastomycosis [None]
